FAERS Safety Report 12527575 (Version 2)
Quarter: 2016Q3

REPORT INFORMATION
  Report Type: Spontaneous
  Country: US (occurrence: US)
  Receive Date: 20160705
  Receipt Date: 20160722
  Transmission Date: 20161109
  Serious: Yes (Other)
  Sender: FDA-Public Use
  Company Number: US-ROCHE-1787222

PATIENT
  Age: 57 Year
  Sex: Male

DRUGS (8)
  1. LANTUS [Concomitant]
     Active Substance: INSULIN GLARGINE
     Dosage: 100 UNITS/ML
     Route: 065
  2. OMEPRAZOLE. [Concomitant]
     Active Substance: OMEPRAZOLE
  3. CIALIS [Concomitant]
     Active Substance: TADALAFIL
     Indication: CHRONIC OBSTRUCTIVE PULMONARY DISEASE
  4. LUCENTIS [Suspect]
     Active Substance: RANIBIZUMAB
     Indication: MACULAR DEGENERATION
     Route: 050
     Dates: start: 2014, end: 2014
  5. INSULIN [Concomitant]
     Active Substance: INSULIN NOS
     Indication: DIABETES MELLITUS
     Route: 065
     Dates: end: 201404
  6. AMLODIPINE BESILATE/ATORVASTATIN CALCIUM [Concomitant]
     Active Substance: AMLODIPINE BESYLATE\ATORVASTATIN CALCIUM
     Dosage: 10/10 MG
     Route: 048
  7. DIOVAN [Concomitant]
     Active Substance: VALSARTAN
     Route: 048
  8. COREG [Concomitant]
     Active Substance: CARVEDILOL
     Route: 048

REACTIONS (9)
  - Lenticular opacities [Unknown]
  - Cataract [Unknown]
  - Haemorrhage urinary tract [Not Recovered/Not Resolved]
  - Bladder cancer [Not Recovered/Not Resolved]
  - Visual acuity reduced [Unknown]
  - Haemorrhoids [Unknown]
  - Urinary bladder haemorrhage [Not Recovered/Not Resolved]
  - Aneurysm [Not Recovered/Not Resolved]
  - Haemorrhage [Not Recovered/Not Resolved]

NARRATIVE: CASE EVENT DATE: 2014
